FAERS Safety Report 10576987 (Version 2)
Quarter: 2015Q1

REPORT INFORMATION
  Report Type: Report from Study
  Country: US (occurrence: US)
  Receive Date: 20141111
  Receipt Date: 20150210
  Transmission Date: 20150720
  Serious: Yes (Hospitalization)
  Sender: FDA-Public Use
  Company Number: PHEH2014US022491

PATIENT
  Sex: Female

DRUGS (1)
  1. TASIGNA [Suspect]
     Active Substance: NILOTINIB
     Indication: PRODUCT USED FOR UNKNOWN INDICATION
     Dosage: 300 MG, BID
     Route: 048
     Dates: start: 20140324

REACTIONS (18)
  - Abdominal pain [Unknown]
  - Pyrexia [Unknown]
  - Weight decreased [Unknown]
  - Early satiety [Unknown]
  - Anxiety [Unknown]
  - Red blood cell count decreased [Unknown]
  - Mean platelet volume increased [Unknown]
  - Blood chloride increased [Unknown]
  - Splenomegaly [Unknown]
  - Contusion [Unknown]
  - Mood swings [Unknown]
  - Blood creatinine decreased [Unknown]
  - Platelet count decreased [Unknown]
  - Thrombocytopenia [Unknown]
  - Fatigue [Unknown]
  - Mean cell haemoglobin concentration decreased [Unknown]
  - Night sweats [Unknown]
  - Exposure during pregnancy [Unknown]
